FAERS Safety Report 5445724-2 (Version None)
Quarter: 2007Q3

REPORT INFORMATION
  Report Type: 
  Country: None (occurrence: None)
  Receive Date: 20070904
  Receipt Date: 20070821
  Transmission Date: 20080115
  Serious: Yes (Other)
  Sender: FDA-Public Use
  Company Number: 237042K07USA

PATIENT
  Age: 56 Year
  Sex: Female
  Weight: 81.6475 kg

DRUGS (5)
  1. REBIF [Suspect]
     Indication: MULTIPLE SCLEROSIS
     Dosage: 44 MCG, 3 IN 1 WEEKS, SUBCUTANEOUS
     Route: 058
     Dates: start: 20061006
  2. LISINOPRIL [Concomitant]
  3. TOPROL-XL [Concomitant]
  4. NEXIUM [Concomitant]
  5. FOLIC ACID [Concomitant]

REACTIONS (1)
  - TYPE 2 DIABETES MELLITUS [None]
